FAERS Safety Report 11824886 (Version 1)
Quarter: 2015Q4

REPORT INFORMATION
  Report Type: Spontaneous
  Country: JP (occurrence: JP)
  Receive Date: 20151210
  Receipt Date: 20151210
  Transmission Date: 20160305
  Serious: Yes (Other)
  Sender: FDA-Public Use
  Company Number: JP-GILEAD-2015-0187557

PATIENT
  Age: 35 Year
  Sex: Male

DRUGS (3)
  1. PREZISTANAIVE [Concomitant]
     Active Substance: DARUNAVIR
     Indication: HIV INFECTION
     Route: 048
  2. TRUVADA [Suspect]
     Active Substance: EMTRICITABINE\TENOFOVIR DISOPROXIL FUMARATE
     Indication: HIV INFECTION
     Route: 048
  3. NORVIR [Suspect]
     Active Substance: RITONAVIR
     Indication: HIV INFECTION
     Route: 048

REACTIONS (7)
  - Cushing^s syndrome [Unknown]
  - Cushingoid [Unknown]
  - Acne [Unknown]
  - Weight increased [Unknown]
  - Malaise [Unknown]
  - Lipohypertrophy [Unknown]
  - Asthenia [Unknown]
